FAERS Safety Report 8981443 (Version 1)
Quarter: 2012Q4

REPORT INFORMATION
  Report Type: 
  Country: FR (occurrence: FR)
  Receive Date: 20121221
  Receipt Date: 20121221
  Transmission Date: 20130627
  Serious: Yes (Death, Life-Threatening)
  Sender: FDA-Public Use
  Company Number: FR-CELGENEUS-056-21880-12121825

PATIENT
  Age: 78 Year
  Sex: Female

DRUGS (2)
  1. REVLIMID [Suspect]
     Indication: B-CELL LYMPHOMA
     Dosage: 25 Milligram
     Route: 048
     Dates: start: 20101025, end: 20101118
  2. DEXAMETHASONE [Suspect]
     Indication: B-CELL LYMPHOMA
     Route: 065
     Dates: start: 20101025

REACTIONS (2)
  - Febrile bone marrow aplasia [Fatal]
  - Respiratory distress [Fatal]
